FAERS Safety Report 19047948 (Version 1)
Quarter: 2021Q1

REPORT INFORMATION
  Report Type: Spontaneous
  Country: DE (occurrence: DE)
  Receive Date: 20210324
  Receipt Date: 20210324
  Transmission Date: 20210420
  Serious: Yes (Hospitalization, Other)
  Sender: FDA-Public Use
  Company Number: DE-AUROBINDO-AUR-APL-2021-011224

PATIENT
  Age: 75 Year
  Sex: Male

DRUGS (2)
  1. PIPERACILLIN AND TAZOBACTAM [Suspect]
     Active Substance: PIPERACILLIN SODIUM\TAZOBACTAM SODIUM
     Indication: PNEUMONIA ASPIRATION
     Dosage: UNK
     Route: 065
  2. POVIDONE?IODINE. [Suspect]
     Active Substance: POVIDONE-IODINE
     Indication: INFECTION PROPHYLAXIS
     Dosage: UNK (EXPOSURE TIME 1 MIN)
     Route: 003

REACTIONS (6)
  - Clostridium difficile infection [Recovered/Resolved]
  - Cardiac pacemaker removal [Recovered/Resolved]
  - Cardiac pacemaker replacement [Recovered/Resolved]
  - Device related infection [Recovered/Resolved]
  - Drug ineffective [Unknown]
  - Endocarditis bacterial [Recovered/Resolved]
